FAERS Safety Report 15197731 (Version 1)
Quarter: 2018Q3

REPORT INFORMATION
  Report Type: Spontaneous
  Country: US (occurrence: US)
  Receive Date: 20180725
  Receipt Date: 20180725
  Transmission Date: 20181010
  Serious: No
  Sender: FDA-Public Use
  Company Number: US-ABBVIE-17P-163-2135814-00

PATIENT
  Age: 79 Year
  Sex: Female
  Weight: 44.04 kg

DRUGS (1)
  1. SYNTHROID [Suspect]
     Active Substance: LEVOTHYROXINE SODIUM
     Indication: HYPOTHYROIDISM
     Route: 048

REACTIONS (7)
  - Dry mouth [Recovered/Resolved]
  - Nasal dryness [Recovered/Resolved]
  - Dry throat [Recovered/Resolved]
  - Tongue dry [Recovered/Resolved]
  - Nausea [Recovered/Resolved]
  - Tremor [Recovering/Resolving]
  - Product quality issue [Not Recovered/Not Resolved]

NARRATIVE: CASE EVENT DATE: 20171017
